FAERS Safety Report 8080460-8 (Version None)
Quarter: 2012Q1

REPORT INFORMATION
  Report Type: 
  Country: None (occurrence: None)
  Receive Date: 20120130
  Receipt Date: 20120118
  Transmission Date: 20120608
  Serious: Yes (Other)
  Sender: FDA-Public Use
  Company Number: JP-PFIZER INC-2012007451

PATIENT
  Age: 21 Month
  Sex: Female

DRUGS (2)
  1. CYCLOSPORINE [Interacting]
  2. SOLU-MEDROL [Suspect]
     Route: 041

REACTIONS (2)
  - POSTERIOR REVERSIBLE ENCEPHALOPATHY SYNDROME [None]
  - DRUG INTERACTION [None]
